FAERS Safety Report 8254714-6 (Version None)
Quarter: 2012Q1

REPORT INFORMATION
  Report Type: 
  Country: None (occurrence: None)
  Receive Date: 20120322
  Receipt Date: 20120109
  Transmission Date: 20120608
  Serious: Yes (Hospitalization)
  Sender: FDA-Public Use
  Company Number: UTC-014450

PATIENT
  Age: 75 Year
  Sex: Female
  Weight: 81.8 kg

DRUGS (3)
  1. PREDNISONE TAB [Suspect]
  2. ANTIBIOTICS (ANTIBIOTICS) [Suspect]
  3. TYVASO [Suspect]
     Indication: PULMONARY HYPERTENSION
     Dosage: 216 MCG (54 MCG, 4 IN 1 D), INHALATION
     Route: 055
     Dates: start: 20091111

REACTIONS (4)
  - BRONCHITIS [None]
  - ABDOMINAL DISCOMFORT [None]
  - ASTHMA [None]
  - PULMONARY ARTERIAL HYPERTENSION [None]
